FAERS Safety Report 6343771-X (Version None)
Quarter: 2009Q3

REPORT INFORMATION
  Report Type: 
  Country: None (occurrence: None)
  Receive Date: 20090908
  Receipt Date: 20090828
  Transmission Date: 20100115
  Serious: Yes (Hospitalization)
  Sender: FDA-Public Use
  Company Number: B0587876A

PATIENT
  Sex: Female

DRUGS (5)
  1. PAXIL [Suspect]
     Indication: DEPRESSION
     Dosage: 10MG PER DAY
     Route: 048
     Dates: start: 20090721, end: 20090803
  2. NAUZELIN [Suspect]
     Indication: PROPHYLAXIS OF NAUSEA AND VOMITING
     Dosage: 10MG THREE TIMES PER DAY
     Route: 048
     Dates: start: 20090721, end: 20090803
  3. AMLODIPINE [Concomitant]
     Dosage: 2.5MG PER DAY
     Route: 048
     Dates: end: 20090803
  4. BLOPRESS [Concomitant]
     Dosage: 4MG PER DAY
     Route: 048
     Dates: end: 20090803
  5. URSO 250 [Concomitant]
     Dosage: 200MG THREE TIMES PER DAY
     Route: 048
     Dates: end: 20090803

REACTIONS (4)
  - EXTRAPYRAMIDAL DISORDER [None]
  - MASKED FACIES [None]
  - MUSCLE RIGIDITY [None]
  - TREMOR [None]
